FAERS Safety Report 4783435-7 (Version None)
Quarter: 2005Q3

REPORT INFORMATION
  Report Type: 
  Country: None (occurrence: None)
  Receive Date: 20050928
  Receipt Date: 20050928
  Transmission Date: 20060218
  Serious: Yes (Hospitalization, Other)
  Sender: FDA-Public Use
  Company Number: None

PATIENT
  Sex: Male
  Weight: 98.18 kg

DRUGS (8)
  1. CAPECITABINE [Suspect]
     Indication: RECTAL CANCER
     Dosage: SEE IMAGE
     Route: 048
     Dates: start: 20041207, end: 20050119
  2. CAPECITABINE [Suspect]
     Indication: RECTAL CANCER
     Dosage: SEE IMAGE
     Route: 048
     Dates: start: 20050104
  3. OXALIPLATIN [Suspect]
     Dosage: SEE IMAGE
     Route: 042
     Dates: start: 20050104, end: 20050104
  4. OXALIPLATIN [Suspect]
     Dosage: SEE IMAGE
     Route: 042
     Dates: start: 20050104, end: 20050104
  5. LEUCOVORIN [Suspect]
     Dosage: SEE IMAGE
     Route: 042
     Dates: start: 20050104
  6. FLUOROURACIL [Suspect]
     Dosage: SEE IMAGE
     Route: 042
     Dates: start: 20050104
  7. FLUOROURACIL [Suspect]
     Dosage: SEE IMAGE
     Dates: start: 20050104
  8. RADIATION [Suspect]
     Dosage: SEE IMAGE
     Dates: start: 20050104

REACTIONS (8)
  - ABDOMINAL ABSCESS [None]
  - ABDOMINAL PAIN [None]
  - COMPUTERISED TOMOGRAM ABDOMEN ABNORMAL [None]
  - DEEP VEIN THROMBOSIS [None]
  - NAUSEA [None]
  - POSTOPERATIVE ABSCESS [None]
  - PYREXIA [None]
  - VOMITING [None]
